FAERS Safety Report 16420283 (Version 1)
Quarter: 2019Q2

REPORT INFORMATION
  Report Type: Spontaneous
  Country: US (occurrence: US)
  Receive Date: 20190612
  Receipt Date: 20190612
  Transmission Date: 20190711
  Serious: No
  Sender: FDA-Public Use
  Company Number: US-PFIZER INC-2019247830

PATIENT

DRUGS (2)
  1. LYRICA [Suspect]
     Active Substance: PREGABALIN
     Indication: NEUROPATHY PERIPHERAL
     Dosage: 100 MG IN MORNING AND 150 MG AT NIGHT
  2. LYRICA [Suspect]
     Active Substance: PREGABALIN
     Dosage: 100 MG IN MORNING AND 150 MG AT NIGHT

REACTIONS (1)
  - Cough [Unknown]
